FAERS Safety Report 7486793-8 (Version None)
Quarter: 2011Q2

REPORT INFORMATION
  Report Type: 
  Country: None (occurrence: None)
  Receive Date: 20110517
  Receipt Date: 20110512
  Transmission Date: 20111010
  Serious: Yes (Death)
  Sender: FDA-Public Use
  Company Number: US-PFIZER INC-2011103145

PATIENT
  Sex: Female

DRUGS (1)
  1. AZULFIDINE [Suspect]

REACTIONS (1)
  - DEATH [None]
